FAERS Safety Report 12319043 (Version 2)
Quarter: 2016Q4

REPORT INFORMATION
  Report Type: Spontaneous
  Country: US (occurrence: US)
  Receive Date: 20160429
  Receipt Date: 20161004
  Transmission Date: 20170207
  Serious: Yes (Hospitalization, Other)
  Sender: FDA-Public Use
  Company Number: US-009507513-1604USA016184

PATIENT
  Sex: Female
  Weight: 52.15 kg

DRUGS (1)
  1. NUVARING [Suspect]
     Active Substance: ETHINYL ESTRADIOL\ETONOGESTREL
     Indication: CONTRACEPTION
     Dosage: 0.12-0.015MG
     Route: 067
     Dates: start: 201212, end: 20140427

REACTIONS (14)
  - Pulmonary embolism [Unknown]
  - Giardiasis [Unknown]
  - Chest pain [Unknown]
  - Stress [Unknown]
  - Atypical pneumonia [Recovered/Resolved]
  - Dyspnoea [Unknown]
  - Hypersensitivity [Unknown]
  - Giardiasis [Unknown]
  - Fear [Unknown]
  - Alcoholism [Unknown]
  - Pulmonary embolism [Unknown]
  - Depression [Unknown]
  - Dyspepsia [Not Recovered/Not Resolved]
  - Pain [Unknown]

NARRATIVE: CASE EVENT DATE: 2014
